FAERS Safety Report 6832426-0 (Version None)
Quarter: 2010Q3

REPORT INFORMATION
  Report Type: 
  Country: None (occurrence: None)
  Receive Date: 20100712
  Receipt Date: 20070308
  Transmission Date: 20110219
  Serious: No
  Sender: FDA-Public Use
  Company Number: US-PFIZER INC-2007020497

PATIENT
  Sex: Female
  Weight: 63.5 kg

DRUGS (5)
  1. CHANTIX [Suspect]
     Indication: SMOKING CESSATION THERAPY
     Route: 048
     Dates: start: 20070306
  2. TPN [Concomitant]
  3. PREMARIN [Concomitant]
  4. CELEBREX [Concomitant]
  5. VIOXX [Concomitant]

REACTIONS (2)
  - MIDDLE INSOMNIA [None]
  - NAUSEA [None]
